FAERS Safety Report 7138607-3 (Version None)
Quarter: 2010Q4

REPORT INFORMATION
  Report Type: 
  Country: None (occurrence: None)
  Receive Date: 20101109
  Receipt Date: 20101027
  Transmission Date: 20110411
  Serious: Yes (Death, Hospitalization)
  Sender: FDA-Public Use
  Company Number: THYM-1001250

PATIENT
  Age: 57 Year
  Sex: Male
  Weight: 66 kg

DRUGS (10)
  1. THYMOGLOBULIN [Suspect]
     Indication: APLASTIC ANAEMIA
     Dosage: 2.5 MG, Q1HR, INTRAVENOUS; 250 MG, Q12HR, INTRAVENOUS
     Route: 042
     Dates: start: 20090810, end: 20090810
  2. CYCLOSPORINE [Concomitant]
  3. PROTON PUMP INHIBITORS [Concomitant]
  4. METHYLPREDNISOLONE [Concomitant]
  5. FILGRASTIM (FILGRASTIM) [Concomitant]
  6. TEICOPLANIN (TEICOPLANIN) [Concomitant]
  7. VORICONAZOLE [Concomitant]
  8. CLINDAMYCIN PHOSPHATE [Concomitant]
  9. RED BLOOD CELLS, CONCENTRATED (RED BLOOD CELLS, CONCENTRATED) [Concomitant]
  10. PLATELETS, CONCENTRATED (PLATELETS, CONCENTRATED) [Concomitant]

REACTIONS (5)
  - BACTERIAL SEPSIS [None]
  - CEREBRAL HAEMORRHAGE [None]
  - GASTRITIS BACTERIAL [None]
  - PANCYTOPENIA [None]
  - STENOTROPHOMONAS SEPSIS [None]
